FAERS Safety Report 10386801 (Version 1)
Quarter: 2014Q1

REPORT INFORMATION
  Report Type: Spontaneous
  Country: US (occurrence: None)
  Receive Date: 20140306
  Receipt Date: 20140306
  Transmission Date: 20141002
  Serious: Yes (Hospitalization)
  Sender: FDA-Public Use
  Company Number: 163-21880-13061245

PATIENT
  Age: 56 Year
  Sex: Male

DRUGS (3)
  1. REVLIMID (LENALIDOMIDE) (15 MILLIGRAM, CAPSULES) [Suspect]
     Indication: AMYLOIDOSIS
     Dosage: 21 IN 21 D
     Route: 048
     Dates: start: 20130118, end: 20130430
  2. VELCADE (BORTEZOMIB) [Concomitant]
  3. IRON [Concomitant]

REACTIONS (8)
  - Amyloidosis [None]
  - Aphagia [None]
  - Asthenia [None]
  - Abasia [None]
  - Fatigue [None]
  - Dehydration [None]
  - Weight decreased [None]
  - No therapeutic response [None]
